FAERS Safety Report 5960303-6 (Version None)
Quarter: 2008Q4

REPORT INFORMATION
  Report Type: 
  Country: None (occurrence: None)
  Receive Date: 20081120
  Receipt Date: 20081112
  Transmission Date: 20090506
  Serious: Yes (Hospitalization, Other)
  Sender: FDA-Public Use
  Company Number: US-CELGENEUS-163-21880-08101613

PATIENT
  Sex: Female

DRUGS (4)
  1. REVLIMID [Suspect]
     Indication: MULTIPLE MYELOMA
     Route: 048
     Dates: start: 20080601, end: 20081001
  2. REVLIMID [Suspect]
     Route: 048
     Dates: start: 20081022
  3. DECADRON [Concomitant]
     Indication: MULTIPLE MYELOMA
     Route: 065
     Dates: start: 20080601
  4. ASPIRIN [Concomitant]
     Route: 065
     Dates: start: 20080601

REACTIONS (2)
  - ERYSIPELAS [None]
  - SPINAL COMPRESSION FRACTURE [None]
